FAERS Safety Report 9877092 (Version 1)
Quarter: 2014Q1

REPORT INFORMATION
  Report Type: Spontaneous
  Country: BR (occurrence: BR)
  Receive Date: 20140206
  Receipt Date: 20140206
  Transmission Date: 20141002
  Serious: Yes (Hospitalization)
  Sender: FDA-Public Use
  Company Number: BR-ROCHE-1343530

PATIENT
  Sex: Female

DRUGS (4)
  1. RIVOTRIL [Suspect]
     Indication: PRODUCT USED FOR UNKNOWN INDICATION
     Dosage: 5 DROPS IN THE EVENINGS
     Route: 065
  2. BUSCOPAN (BUSCOPAN COMP.) [Suspect]
     Indication: PRODUCT USED FOR UNKNOWN INDICATION
     Dosage: ONE AMPOULE IN INTERVALS OF 8 HOURS
     Route: 065
  3. AAS [Concomitant]
     Route: 065
  4. ENALAPRIL [Concomitant]
     Route: 065

REACTIONS (3)
  - Abdominal pain [Recovering/Resolving]
  - Abdominal pain upper [Recovering/Resolving]
  - Pruritus [Recovering/Resolving]
